FAERS Safety Report 5994674-1 (Version None)
Quarter: 2008Q4

REPORT INFORMATION
  Report Type: 
  Country: None (occurrence: None)
  Receive Date: 20081212
  Receipt Date: 20081007
  Transmission Date: 20090506
  Serious: No
  Sender: FDA-Public Use
  Company Number: US-ABBOTT-08P-163-0476003-00

PATIENT
  Sex: Male
  Weight: 81.72 kg

DRUGS (18)
  1. HUMIRA [Suspect]
     Indication: CROHN'S DISEASE
     Route: 050
     Dates: start: 20080301
  2. NOT REPRORTED [Concomitant]
     Indication: BLOOD PRESSURE
  3. NOT REPORTED [Concomitant]
     Indication: ASTHMA
  4. SPIRIVA [Concomitant]
     Indication: DRUG USE FOR UNKNOWN INDICATION
  5. MONTELUKAST SODIUM [Concomitant]
     Indication: DRUG USE FOR UNKNOWN INDICATION
  6. PANTOPRAZOLE SODIUM [Concomitant]
     Indication: DRUG USE FOR UNKNOWN INDICATION
  7. BENAZEPRIL HYDROCHLORIDE [Concomitant]
     Indication: DRUG USE FOR UNKNOWN INDICATION
  8. HYDROCHLOROTHIAZIDE [Concomitant]
     Indication: DRUG USE FOR UNKNOWN INDICATION
  9. COLESEVELAM HYDROCHLORIDE [Concomitant]
     Indication: DRUG USE FOR UNKNOWN INDICATION
  10. ALBUTEROL SULFATE [Concomitant]
     Indication: DRUG USE FOR UNKNOWN INDICATION
  11. LEVOSALBUTAMOL TARTRATE [Concomitant]
     Indication: DRUG USE FOR UNKNOWN INDICATION
  12. PREGABALIN [Concomitant]
     Indication: DRUG USE FOR UNKNOWN INDICATION
  13. LINUM USITATISSIMUM SEED OIL [Concomitant]
     Indication: DRUG USE FOR UNKNOWN INDICATION
  14. FISH OIL [Concomitant]
     Indication: DRUG USE FOR UNKNOWN INDICATION
  15. UBIDECARENONE [Concomitant]
     Indication: DRUG USE FOR UNKNOWN INDICATION
  16. SLOFE [Concomitant]
     Indication: DRUG USE FOR UNKNOWN INDICATION
  17. SLOMAG [Concomitant]
     Indication: DRUG USE FOR UNKNOWN INDICATION
  18. ACETYLSALICYLIC ACID SRT [Concomitant]
     Indication: DRUG USE FOR UNKNOWN INDICATION

REACTIONS (4)
  - BLOOD CALCIUM DECREASED [None]
  - BLOOD POTASSIUM DECREASED [None]
  - OEDEMA PERIPHERAL [None]
  - WEIGHT INCREASED [None]
